FAERS Safety Report 20336842 (Version 2)
Quarter: 2022Q2

REPORT INFORMATION
  Report Type: Spontaneous
  Country: KR (occurrence: KR)
  Receive Date: 20220114
  Receipt Date: 20220420
  Transmission Date: 20220721
  Serious: Yes (Hospitalization, Other)
  Sender: FDA-Public Use
  Company Number: KR-009507513-2112KOR005662

PATIENT
  Age: 57 Year
  Sex: Female
  Weight: 53.4 kg

DRUGS (4)
  1. PEMBROLIZUMAB [Suspect]
     Active Substance: PEMBROLIZUMAB
     Indication: Endometrial adenocarcinoma
     Dosage: TOTAL DAILY DOSE: 200 MG
     Route: 042
     Dates: start: 20211019
  2. PEMBROLIZUMAB [Suspect]
     Active Substance: PEMBROLIZUMAB
     Dosage: TOTAL DAILY DOSE: 200 MG
     Route: 042
     Dates: start: 20211116
  3. LENVATINIB MESYLATE [Suspect]
     Active Substance: LENVATINIB MESYLATE
     Indication: Endometrial adenocarcinoma
     Dosage: TOTAL DAILY DOSE: 20 MG
     Route: 048
     Dates: start: 20211019, end: 20211109
  4. LENVATINIB MESYLATE [Suspect]
     Active Substance: LENVATINIB MESYLATE
     Dosage: TOTAL DAILY DOSE: 20 MG
     Route: 048
     Dates: start: 20211116, end: 20211121

REACTIONS (4)
  - Cardiac failure [Recovered/Resolved with Sequelae]
  - Drug interaction [Recovered/Resolved with Sequelae]
  - Diarrhoea [Recovered/Resolved with Sequelae]
  - Dyspnoea [Unknown]

NARRATIVE: CASE EVENT DATE: 20211117
